FAERS Safety Report 7132259-4 (Version None)
Quarter: 2010Q4

REPORT INFORMATION
  Report Type: 
  Country: None (occurrence: None)
  Receive Date: 20101202
  Receipt Date: 20101118
  Transmission Date: 20110411
  Serious: Yes (Other)
  Sender: FDA-Public Use
  Company Number: PHHY2010IT78315

PATIENT
  Age: 50 Year
  Sex: Male

DRUGS (5)
  1. DEFERASIROX [Suspect]
     Indication: MYELODYSPLASTIC SYNDROME
     Dosage: 20 MG/KG, UNK
     Dates: start: 20080601
  2. DEFERASIROX [Suspect]
     Dosage: 10 MG/KG/DAY
  3. DEFERASIROX [Suspect]
     Dosage: 20 MG/KG/DAY
  4. DEFERASIROX [Suspect]
     Dosage: 10 MG/KG/DAY
  5. TRANSFUSIONS [Concomitant]

REACTIONS (5)
  - CHOLECYSTITIS INFECTIVE [None]
  - HAEMOGLOBIN DECREASED [None]
  - RASH [None]
  - SURGERY [None]
  - TRANSAMINASES INCREASED [None]
